FAERS Safety Report 7837782-2 (Version None)
Quarter: 2011Q4

REPORT INFORMATION
  Report Type: 
  Country: None (occurrence: None)
  Receive Date: 20111024
  Receipt Date: 20100720
  Transmission Date: 20120403
  Serious: No
  Sender: FDA-Public Use
  Company Number: US-BAYER-201028772NA

PATIENT
  Age: 54 Year
  Sex: Female

DRUGS (4)
  1. ZOLOFT [Concomitant]
  2. LORAZEPAM [Concomitant]
  3. CIPROFLOXACIN [Suspect]
     Indication: URINARY TRACT INFECTION
     Dosage: 500 MG, BID
     Route: 048
     Dates: start: 20100719, end: 20100719
  4. TRAZODONE HYDROCHLORIDE [Concomitant]

REACTIONS (1)
  - BURNING SENSATION [None]
